FAERS Safety Report 25760947 (Version 1)
Quarter: 2025Q3

REPORT INFORMATION
  Report Type: Spontaneous
  Country: US (occurrence: US)
  Receive Date: 20250904
  Receipt Date: 20250904
  Transmission Date: 20251021
  Serious: Yes (Death, Other)
  Sender: AMGEN
  Company Number: US-AMGEN-USASP2025173197

PATIENT

DRUGS (3)
  1. RITUXIMAB [Suspect]
     Active Substance: RITUXIMAB
     Indication: B-cell lymphoma
     Dosage: 375 MILLIGRAM/SQ. METER, QWK (DURING CYCLE 1 AND AND ON D1 DURING CYCLES 2 TO 6)
     Route: 040
  2. LENALIDOMIDE [Concomitant]
     Active Substance: LENALIDOMIDE
     Indication: B-cell lymphoma
     Route: 048
  3. EVORPACEPT [Concomitant]
     Active Substance: EVORPACEPT
     Indication: B-cell lymphoma
     Route: 040

REACTIONS (4)
  - Death [Fatal]
  - B-cell lymphoma [Unknown]
  - Follicular lymphoma [Unknown]
  - Therapy non-responder [Unknown]
